FAERS Safety Report 16264752 (Version 1)
Quarter: 2020Q3

REPORT INFORMATION
  Report Type: Spontaneous
  Country: US (occurrence: US)
  Receive Date: 20190502
  Receipt Date: 20190502
  Transmission Date: 20201104
  Serious: No
  Sender: FDA-Public Use
  Company Number: US-PFIZER INC-2019183279

PATIENT
  Age: 69 Year
  Sex: Female

DRUGS (52)
  1. CHLORPHENAMINE MALEATE/DEXTROMETHORPHAN HYDROBROMIDE [Suspect]
     Active Substance: CHLORPHENIRAMINE MALEATE\DEXTROMETHORPHAN HYDROBROMIDE
     Dosage: UNK
  2. BUTALBITAL [Suspect]
     Active Substance: BUTALBITAL
     Dosage: UNK
  3. CODEINE [Suspect]
     Active Substance: CODEINE
     Dosage: UNK
  4. DIFLUNISAL. [Suspect]
     Active Substance: DIFLUNISAL
     Dosage: UNK
  5. DEXCHLORPHENIRAMINE [Suspect]
     Active Substance: DEXCHLORPHENIRAMINE
     Dosage: UNK
  6. DOXYCYCLINE HYCLATE. [Suspect]
     Active Substance: DOXYCYCLINE HYCLATE
     Dosage: UNK
  7. GUAIFENESIN. [Suspect]
     Active Substance: GUAIFENESIN
     Dosage: UNK
  8. TRIAMCINOLONE [Suspect]
     Active Substance: TRIAMCINOLONE
     Dosage: UNK
  9. SCOPOLAMINE AMINOXIDE [Suspect]
     Active Substance: SCOPOLAMINE N-OXIDE
     Dosage: UNK
  10. TERBUTALINE [Suspect]
     Active Substance: TERBUTALINE
     Dosage: UNK
  11. PYRILAMINE. [Suspect]
     Active Substance: PYRILAMINE
     Dosage: UNK
  12. TRIPROLIDINE [Suspect]
     Active Substance: TRIPROLIDINE
     Dosage: UNK
  13. PHENOBARBITAL. [Suspect]
     Active Substance: PHENOBARBITAL
     Dosage: UNK
  14. ACETAMINOPHEN. [Suspect]
     Active Substance: ACETAMINOPHEN
     Dosage: UNK
  15. ISOETHARINE. [Suspect]
     Active Substance: ISOETHARINE
     Dosage: UNK
  16. NAPROXEN. [Suspect]
     Active Substance: NAPROXEN
     Dosage: UNK
  17. CEPHALEXIN [CEFALEXIN] [Suspect]
     Active Substance: CEPHALEXIN
     Dosage: UNK
  18. BITOLTEROL MESYLATE [Suspect]
     Active Substance: BITOLTEROL MESYLATE
     Dosage: UNK
  19. CARBINOXAMINE [Suspect]
     Active Substance: CARBINOXAMINE
     Dosage: UNK
  20. HYDROMORPHONE HYDROCHLORIDE. [Suspect]
     Active Substance: HYDROMORPHONE HYDROCHLORIDE
     Dosage: UNK
  21. DILTIAZEM HCL [Suspect]
     Active Substance: DILTIAZEM HYDROCHLORIDE
     Dosage: UNK
  22. METOPROLOL TARTRATE. [Suspect]
     Active Substance: METOPROLOL TARTRATE
     Dosage: UNK
  23. PROPOXYPHENE. [Suspect]
     Active Substance: PROPOXYPHENE
     Dosage: UNK
  24. PSEUDOEPHEDRINE. [Suspect]
     Active Substance: PSEUDOEPHEDRINE HYDROCHLORIDE
     Dosage: UNK
  25. PHENYLTOLOXAMINE [Suspect]
     Active Substance: PHENYLTOLOXAMINE
     Dosage: UNK
  26. CLEMASTINE [Suspect]
     Active Substance: CLEMASTINE
     Dosage: UNK
  27. BROMPHENIRAMINE MALEATE. [Suspect]
     Active Substance: BROMPHENIRAMINE MALEATE
     Dosage: UNK
  28. METRONIDAZOLE. [Suspect]
     Active Substance: METRONIDAZOLE
     Dosage: UNK
  29. MEPERIDINE HCL [Suspect]
     Active Substance: MEPERIDINE HYDROCHLORIDE
     Dosage: UNK
  30. IBUPROFEN. [Suspect]
     Active Substance: IBUPROFEN
     Dosage: UNK
  31. LISINOPRIL. [Suspect]
     Active Substance: LISINOPRIL
     Dosage: UNK
  32. EPHEDRINE. [Suspect]
     Active Substance: EPHEDRINE
     Dosage: UNK
  33. TETANUS TOXOID [Suspect]
     Active Substance: TETANUS TOXOIDS
     Dosage: UNK
  34. CROMOLYN SODIUM. [Suspect]
     Active Substance: CROMOLYN SODIUM
     Dosage: UNK
  35. METHYLSCOPOLAMINE BROMIDE [Suspect]
     Active Substance: METHSCOPOLAMINE BROMIDE
     Dosage: UNK
  36. TETRACYCLINE HCL [Suspect]
     Active Substance: TETRACYCLINE HYDROCHLORIDE
     Dosage: UNK
  37. NITROFURANTOIN. [Suspect]
     Active Substance: NITROFURANTOIN
     Dosage: UNK
  38. BECLOMETHASONE [Suspect]
     Active Substance: BECLOMETHASONE
     Dosage: UNK
  39. MULTIVITAMINS PLUS IRON [Suspect]
     Active Substance: IRON\VITAMINS
     Dosage: UNK
  40. VITAMIN B COMPLEX [Suspect]
     Active Substance: CYANOCOBALAMIN\DEXPANTHENOL\NIACINAMIDE\PYRIDOXINE HYDROCHLORIDE\RIBOFLAVIN 5^-PHOSPHATE SODIUM\THIAMINE HYDROCHLORIDE\VITAMIN B COMPLEX
     Dosage: UNK
  41. THEOPHYLLINE [Suspect]
     Active Substance: THEOPHYLLINE ANHYDROUS
     Dosage: UNK
  42. ERYTHROMYCIN. [Suspect]
     Active Substance: ERYTHROMYCIN
     Dosage: UNK
  43. OXYCODONE [Suspect]
     Active Substance: OXYCODONE
     Dosage: UNK
  44. SULFISOXAZOLE [Suspect]
     Active Substance: SULFISOXAZOLE
     Dosage: UNK
  45. CYPROHEPTADINE. [Suspect]
     Active Substance: CYPROHEPTADINE
     Dosage: UNK
  46. DEXTROMETHORPHAN HYDROBROMIDE. [Suspect]
     Active Substance: DEXTROMETHORPHAN HYDROBROMIDE
     Dosage: UNK
  47. PENTAZOCINE LACTATE [Suspect]
     Active Substance: PENTAZOCINE LACTATE
     Dosage: UNK
  48. ASPIRIN [ACETYLSALICYLIC ACID] [Suspect]
     Active Substance: ASPIRIN
     Dosage: UNK
  49. PHENYLEPHRINE [Suspect]
     Active Substance: PHENYLEPHRINE HYDROCHLORIDE
     Dosage: UNK
  50. TERFENADINE [Suspect]
     Active Substance: TERFENADINE
     Dosage: UNK
  51. FELODIPINE. [Suspect]
     Active Substance: FELODIPINE
     Dosage: UNK
  52. PHENYLPROPANOLAMINE [Suspect]
     Active Substance: PHENYLPROPANOLAMINE
     Dosage: UNK

REACTIONS (1)
  - Drug hypersensitivity [Unknown]
